FAERS Safety Report 23692042 (Version 1)
Quarter: 2024Q1

REPORT INFORMATION
  Report Type: Spontaneous
  Country: US (occurrence: None)
  Receive Date: 20240329
  Receipt Date: 20240329
  Transmission Date: 20240409
  Serious: No
  Sender: FDA-Public Use
  Company Number: None

PATIENT
  Age: 78 Year
  Sex: Female
  Weight: 56.25 kg

DRUGS (4)
  1. NITROFURANTOIN [Suspect]
     Active Substance: NITROFURANTOIN
     Indication: Urinary tract infection
     Dosage: OTHER QUANTITY : 14 TABLET(S);?FREQUENCY : TWICE A DAY;?
     Route: 048
  2. Lisinopril-HCTZ 20 [Concomitant]
  3. Xarelto 20 MG [Concomitant]
  4. dilTIAZem 24H ER 120MG [Concomitant]

REACTIONS (5)
  - Head discomfort [None]
  - Dizziness [None]
  - Fatigue [None]
  - Asthenia [None]
  - Lethargy [None]

NARRATIVE: CASE EVENT DATE: 20240320
